FAERS Safety Report 4304487-4 (Version None)
Quarter: 2004Q1

REPORT INFORMATION
  Report Type: 
  Country: None (occurrence: None)
  Receive Date: 20040224
  Receipt Date: 20040211
  Transmission Date: 20041129
  Serious: Yes (Hospitalization)
  Sender: FDA-Public Use
  Company Number: CA-JNJFOC-20040202914

PATIENT
  Age: 51 Year
  Sex: Male
  Weight: 60.9 kg

DRUGS (7)
  1. REMICADE [Suspect]
     Indication: RHEUMATOID ARTHRITIS
     Dosage: 200 MG, INTRAVENOUS
     Route: 042
     Dates: start: 20030919, end: 20030919
  2. REMICADE [Suspect]
     Indication: RHEUMATOID ARTHRITIS
     Dosage: 200 MG, INTRAVENOUS
     Route: 042
     Dates: start: 20031003, end: 20031003
  3. REMICADE [Suspect]
     Indication: RHEUMATOID ARTHRITIS
     Dosage: 200 MG, INTRAVENOUS
     Route: 042
     Dates: start: 20031031, end: 20031031
  4. REMICADE [Suspect]
     Indication: RHEUMATOID ARTHRITIS
     Dosage: 200 MG, INTRAVENOUS
     Route: 042
     Dates: start: 20031219, end: 20031219
  5. METHOTREXATE [Concomitant]
  6. PREDNISONE [Concomitant]
  7. PLAQUENIL [Concomitant]

REACTIONS (10)
  - BILE DUCT OBSTRUCTION [None]
  - CHROMATURIA [None]
  - FAECES DISCOLOURED [None]
  - FATIGUE [None]
  - HEPATITIS [None]
  - JAUNDICE [None]
  - NAUSEA [None]
  - PANCREATIC CARCINOMA [None]
  - PRURITUS [None]
  - VOMITING [None]
